FAERS Safety Report 8315750-4 (Version None)
Quarter: 2012Q2

REPORT INFORMATION
  Report Type: 
  Country: None (occurrence: None)
  Receive Date: 20120426
  Receipt Date: 20120406
  Transmission Date: 20120825
  Serious: Yes (Other)
  Sender: FDA-Public Use
  Company Number: US-JNJFOC-20120403711

PATIENT
  Age: 76 Year
  Sex: Female
  Weight: 99.79 kg

DRUGS (14)
  1. EXTRA STRENGTH TYLENOL [Suspect]
     Indication: ARTHRALGIA
     Dosage: 1 TABLET 2-3X A DAY
     Route: 048
  2. EXTRA STRENGTH TYLENOL [Suspect]
     Dosage: 2-3X A DAY
     Route: 048
  3. EXTRA STRENGTH TYLENOL [Suspect]
     Dosage: 2-3X A DAY
     Route: 048
  4. TRICOR [Concomitant]
     Indication: BLOOD CHOLESTEROL INCREASED
     Dosage: YEARS
     Route: 065
  5. VITAMIN A [Concomitant]
     Indication: VITAMIN SUPPLEMENTATION
     Dosage: COUPLE YEARS
     Route: 065
  6. JANUVIA [Concomitant]
     Indication: DIABETES MELLITUS
     Dosage: SEVERAL MONTHS
     Route: 065
  7. OXYCODONE HCL [Concomitant]
     Indication: ARTHRALGIA
     Dosage: 1 MONTH
     Route: 065
  8. EXTRA STRENGTH TYLENOL [Suspect]
     Indication: ARTHRITIS
     Dosage: 1 TABLET 2-3X A DAY
     Route: 048
  9. VITAMIN D [Concomitant]
     Indication: VITAMIN SUPPLEMENTATION
     Dosage: COUPLE YEARS
     Route: 065
  10. OTHER DRUGS (UNSPECIFIED) [Concomitant]
     Indication: PRODUCT USED FOR UNKNOWN INDICATION
     Dosage: SEVERAL YEARS
     Route: 065
  11. XANAX [Concomitant]
     Indication: ANXIETY
     Dosage: FOREVER
     Route: 065
  12. COUMADIN [Concomitant]
     Indication: ANTICOAGULANT THERAPY
     Dosage: 5-7 YEARS
     Route: 065
  13. ALLOPURINOL [Concomitant]
     Indication: GOUT
     Dosage: 4-5 YEARS
     Route: 065
  14. OTHER DRUGS (UNSPECIFIED) [Concomitant]
     Indication: FLUID RETENTION
     Dosage: 1 YEAR
     Route: 065

REACTIONS (1)
  - RENAL IMPAIRMENT [None]
